FAERS Safety Report 11106257 (Version 2)
Quarter: 2015Q2

REPORT INFORMATION
  Report Type: Spontaneous
  Country: US (occurrence: US)
  Receive Date: 20150512
  Receipt Date: 20150528
  Transmission Date: 20150821
  Serious: Yes (Hospitalization, Other)
  Sender: FDA-Public Use
  Company Number: US-APOTEX-2015AP009077

PATIENT
  Age: 39 Year
  Sex: Male
  Weight: 130 kg

DRUGS (5)
  1. QUETIAPINE FUMARATE. [Suspect]
     Active Substance: QUETIAPINE FUMARATE
     Indication: BIPOLAR DISORDER
     Dosage: 150MG NIGHTLY
     Route: 065
  2. QUETIAPINE FUMARATE. [Interacting]
     Active Substance: QUETIAPINE FUMARATE
     Dosage: 800MG NIGHTLY
     Route: 065
  3. VALPROIC ACID ORAL SOLUTION USP [Interacting]
     Active Substance: VALPROIC ACID
     Indication: BIPOLAR I DISORDER
     Dosage: 2500MG NIGHTLY
     Route: 065
  4. LORAZEPAM. [Concomitant]
     Active Substance: LORAZEPAM
     Indication: PRODUCT USED FOR UNKNOWN INDICATION
     Dosage: 0.5 MG, Q.H.S.
     Route: 065
  5. QUETIAPINE FUMARATE. [Interacting]
     Active Substance: QUETIAPINE FUMARATE
     Dosage: 700MG NIGHTLY
     Route: 065

REACTIONS (5)
  - Drug interaction [Recovering/Resolving]
  - Hyperlipidaemia [Recovered/Resolved]
  - Metabolic syndrome [Recovering/Resolving]
  - Diabetes mellitus [Recovering/Resolving]
  - Hyperglycaemia [Recovering/Resolving]
